FAERS Safety Report 22296340 (Version 1)
Quarter: 2023Q2

REPORT INFORMATION
  Report Type: Spontaneous
  Country: US (occurrence: US)
  Receive Date: 20230508
  Receipt Date: 20230508
  Transmission Date: 20230721
  Serious: No
  Sender: FDA-Public Use
  Company Number: US-GALDERMA-US2023005410

PATIENT

DRUGS (7)
  1. PROACTIV MD ADAPALENE ACNE TREATMENT [Suspect]
     Active Substance: ADAPALENE
     Indication: Acne
     Dosage: 1 DOSAGE FORM, QD, NICKEL SIZE, USED ONLY TWICE
     Route: 061
     Dates: start: 202301, end: 2023
  2. Proactiv MD Ultra Gentle Cleanser [Concomitant]
     Indication: Acne
     Dosage: 1 DOSAGE FORM, BIW, 2 OR MORE TIMES A WEEK, NIKEL SIZE
     Route: 061
     Dates: start: 202301, end: 2023
  3. Proactiv MD Ultra Hydrating Moisturizer [Concomitant]
     Indication: Acne
     Dosage: 1 DOSAGE FORM, USED TWICE, NIKLE SIZE
     Route: 061
     Dates: start: 202301, end: 2023
  4. PROACTIV BLACKHEAD DISSOLVING [Concomitant]
     Active Substance: SALICYLIC ACID
     Indication: Acne
     Dosage: 1 DOSAGE FORM, 1 DOSAGE FORM, USED TWICE, NIKLE SIZE
     Route: 061
     Dates: start: 202301, end: 2023
  5. Proactiv Post Acne Dark Mark Relief [Concomitant]
     Indication: Acne
     Dosage: 1 DOSAGE FORM, USED TWICE, NIKLE SIZE
     Route: 061
     Dates: start: 202301, end: 2023
  6. Proactiv Post Acne Scar Gel [Concomitant]
     Indication: Acne
     Dosage: 1 DOSAGE FORM, USED TWICE, NIKLE SIZE
     Route: 061
     Dates: start: 202301, end: 2023
  7. PROACTIV ACNE BODY WASH [Concomitant]
     Active Substance: SALICYLIC ACID
     Indication: Acne
     Dosage: 1 DOSAGE FORM, BIW, 2 OR MORE TIMES A WEEK, NIKEL SIZE
     Route: 061
     Dates: start: 202301, end: 2023

REACTIONS (5)
  - Skin burning sensation [Recovered/Resolved]
  - Skin irritation [Recovered/Resolved]
  - Erythema [Recovered/Resolved]
  - Rash [Recovered/Resolved]
  - Skin burning sensation [Recovered/Resolved]

NARRATIVE: CASE EVENT DATE: 20230101
